FAERS Safety Report 23559461 (Version 8)
Quarter: 2024Q2

REPORT INFORMATION
  Report Type: Report from Study
  Country: IE (occurrence: IE)
  Receive Date: 20240223
  Receipt Date: 20240508
  Transmission Date: 20240715
  Serious: Yes (Hospitalization, Other)
  Sender: FDA-Public Use
  Company Number: IE-BAXTER-2024BAX013169

PATIENT
  Age: 83 Year
  Sex: Male

DRUGS (97)
  1. SYNTHAMIN [Suspect]
     Active Substance: AMINO ACIDS
     Indication: Parenteral nutrition
     Dosage: DOSAGE TEXT:3000 MLS
     Route: 042
     Dates: start: 20240217, end: 20240218
  2. SYNTHAMIN [Suspect]
     Active Substance: AMINO ACIDS
     Indication: Short-bowel syndrome
     Dosage: DOSAGE TEXT:3000 MLS
     Route: 042
     Dates: start: 20240218, end: 20240219
  3. SYNTHAMIN [Suspect]
     Active Substance: AMINO ACIDS
     Indication: Palliative care
     Dosage: DOSAGE TEXT:3000 MLS
     Route: 042
     Dates: start: 20240112
  4. SYNTHAMIN [Suspect]
     Active Substance: AMINO ACIDS
     Indication: Gastrointestinal disorder
     Dosage: DOSAGE TEXT:3000 MLS
     Route: 042
     Dates: start: 20240409, end: 20240410
  5. SYNTHAMIN [Suspect]
     Active Substance: AMINO ACIDS
     Dosage: DOSAGE TEXT:3000 MLS
     Route: 042
     Dates: start: 20240411, end: 20240412
  6. SYNTHAMIN [Suspect]
     Active Substance: AMINO ACIDS
     Dosage: DOSAGE TEXT: 3000 MLS
     Route: 042
     Dates: start: 20240417
  7. SYNTHAMIN [Suspect]
     Active Substance: AMINO ACIDS
     Dosage: LOWER VOLUME BAG FOR 1 DAY PER WEEK
     Route: 042
  8. WATER FOR INJECTION [Suspect]
     Active Substance: WATER
     Indication: Parenteral nutrition
     Dosage: DOSAGE TEXT:3000 MLS
     Route: 042
     Dates: start: 20240217, end: 20240218
  9. WATER FOR INJECTION [Suspect]
     Active Substance: WATER
     Indication: Short-bowel syndrome
     Dosage: DOSAGE TEXT:3000 MLS
     Route: 042
     Dates: start: 20240218, end: 20240219
  10. WATER FOR INJECTION [Suspect]
     Active Substance: WATER
     Indication: Palliative care
     Dosage: DOSAGE TEXT:3000 MLS
     Route: 042
     Dates: start: 20240112
  11. WATER FOR INJECTION [Suspect]
     Active Substance: WATER
     Indication: Gastrointestinal disorder
     Dosage: DOSAGE TEXT:3000 MLS
     Route: 042
     Dates: start: 20240409, end: 20240410
  12. WATER FOR INJECTION [Suspect]
     Active Substance: WATER
     Dosage: DOSAGE TEXT:3000 MLS
     Route: 042
     Dates: start: 20240411, end: 20240412
  13. WATER FOR INJECTION [Suspect]
     Active Substance: WATER
     Dosage: DOSAGE TEXT:3000 MLS
     Route: 042
     Dates: start: 20240417
  14. WATER FOR INJECTION [Suspect]
     Active Substance: WATER
     Dosage: LOWER VOLUME BAG FOR 1 DAY PER WEEK
     Route: 042
  15. CERNEVIT [Suspect]
     Active Substance: VITAMINS
     Indication: Parenteral nutrition
     Dosage: DOSAGE TEXT:3000 MLS
     Route: 042
     Dates: start: 20240217, end: 20240218
  16. CERNEVIT [Suspect]
     Active Substance: VITAMINS
     Indication: Short-bowel syndrome
     Dosage: DOSAGE TEXT:3000 MLS
     Route: 042
     Dates: start: 20240218, end: 20240219
  17. CERNEVIT [Suspect]
     Active Substance: VITAMINS
     Indication: Palliative care
     Dosage: DOSAGE TEXT:3000 MLS
     Route: 042
     Dates: start: 20240112
  18. CERNEVIT [Suspect]
     Active Substance: VITAMINS
     Indication: Gastrointestinal disorder
     Dosage: DOSAGE TEXT:3000 MLS
     Route: 042
     Dates: start: 20240409, end: 20240410
  19. CERNEVIT [Suspect]
     Active Substance: VITAMINS
     Dosage: DOSAGE TEXT:3000 MLS
     Route: 042
     Dates: start: 20240411, end: 20240412
  20. CERNEVIT [Suspect]
     Active Substance: VITAMINS
     Dosage: DOSAGE TEXT :3000 MLS
     Route: 042
     Dates: start: 20240417
  21. CERNEVIT [Suspect]
     Active Substance: VITAMINS
     Dosage: LOWER VOLUME BAG FOR 1 DAY PER WEEK
     Route: 042
  22. DEXTROSE [Suspect]
     Active Substance: DEXTROSE\DEXTROSE MONOHYDRATE
     Indication: Parenteral nutrition
     Dosage: DOSAGE TEXT :3000 MLS
     Route: 042
     Dates: start: 20240217, end: 20240218
  23. DEXTROSE [Suspect]
     Active Substance: DEXTROSE\DEXTROSE MONOHYDRATE
     Indication: Short-bowel syndrome
     Dosage: DOSAGE TEXT :3000 MLS
     Route: 042
     Dates: start: 20240218, end: 20240219
  24. DEXTROSE [Suspect]
     Active Substance: DEXTROSE\DEXTROSE MONOHYDRATE
     Indication: Palliative care
     Dosage: DOSAGE TEXT :3000 MLS
     Route: 042
     Dates: start: 20240112
  25. DEXTROSE [Suspect]
     Active Substance: DEXTROSE\DEXTROSE MONOHYDRATE
     Indication: Gastrointestinal disorder
     Dosage: DOSAGE TEXT :3000 MLS
     Route: 042
     Dates: start: 20240409, end: 20240410
  26. DEXTROSE [Suspect]
     Active Substance: DEXTROSE\DEXTROSE MONOHYDRATE
     Dosage: DOSAGE TEXT :3000 MLS
     Route: 042
     Dates: start: 20240411, end: 20240412
  27. DEXTROSE [Suspect]
     Active Substance: DEXTROSE\DEXTROSE MONOHYDRATE
     Dosage: DOSAGE TEXT :3000 MLS
     Route: 042
     Dates: start: 20240417
  28. DEXTROSE [Suspect]
     Active Substance: DEXTROSE\DEXTROSE MONOHYDRATE
     Dosage: LOWER VOLUME BAG FOR 1 DAY PER WEEK
     Route: 042
  29. IRON\MINERALS\POTASSIUM IOD\SODIUM FLUORIDE\SODIUM MOLYBDATE\SODIUM SE [Suspect]
     Active Substance: IRON\MINERALS\POTASSIUM IOD\SODIUM FLUORIDE\SODIUM MOLYBDATE\SODIUM SELENITE\ZINC
     Indication: Parenteral nutrition
     Dosage: (DOSAGE TEXT:LABORATOIRE AGUETTANT, S.A.S.), 3000 MLS
     Route: 042
     Dates: start: 20240217, end: 20240218
  30. IRON\MINERALS\POTASSIUM IOD\SODIUM FLUORIDE\SODIUM MOLYBDATE\SODIUM SE [Suspect]
     Active Substance: IRON\MINERALS\POTASSIUM IOD\SODIUM FLUORIDE\SODIUM MOLYBDATE\SODIUM SELENITE\ZINC
     Indication: Short-bowel syndrome
     Dosage: (DOSAGE TEXT:LABORATOIRE AGUETTANT, S.A.S.), 3000 MLS
     Route: 042
     Dates: start: 20240218, end: 20240219
  31. IRON\MINERALS\POTASSIUM IOD\SODIUM FLUORIDE\SODIUM MOLYBDATE\SODIUM SE [Suspect]
     Active Substance: IRON\MINERALS\POTASSIUM IOD\SODIUM FLUORIDE\SODIUM MOLYBDATE\SODIUM SELENITE\ZINC
     Indication: Palliative care
     Dosage: (DOSAGE TEXT:LABORATOIRE AGUETTANT, S.A.S.), 3000 MLS
     Route: 042
     Dates: start: 20240112
  32. IRON\MINERALS\POTASSIUM IOD\SODIUM FLUORIDE\SODIUM MOLYBDATE\SODIUM SE [Suspect]
     Active Substance: IRON\MINERALS\POTASSIUM IOD\SODIUM FLUORIDE\SODIUM MOLYBDATE\SODIUM SELENITE\ZINC
     Indication: Gastrointestinal disorder
     Dosage: DOSAGE TEXT: LABORATOIRE AGUETTANT, S.A.S.), 3000 MLS
     Route: 042
     Dates: start: 20240409, end: 20240410
  33. IRON\MINERALS\POTASSIUM IOD\SODIUM FLUORIDE\SODIUM MOLYBDATE\SODIUM SE [Suspect]
     Active Substance: IRON\MINERALS\POTASSIUM IOD\SODIUM FLUORIDE\SODIUM MOLYBDATE\SODIUM SELENITE\ZINC
     Dosage: DOSAGE TEXT: LABORATOIRE AGUETTANT, S.A.S.), 3000 MLS
     Route: 042
     Dates: start: 20240411, end: 20240412
  34. IRON\MINERALS\POTASSIUM IOD\SODIUM FLUORIDE\SODIUM MOLYBDATE\SODIUM SE [Suspect]
     Active Substance: IRON\MINERALS\POTASSIUM IOD\SODIUM FLUORIDE\SODIUM MOLYBDATE\SODIUM SELENITE\ZINC
     Dosage: DOSAGE TEXT: LABORATOIRE AGUETTANT, S.A.S.), 3000 MLS
     Route: 042
     Dates: start: 20240417
  35. IRON\MINERALS\POTASSIUM IOD\SODIUM FLUORIDE\SODIUM MOLYBDATE\SODIUM SE [Suspect]
     Active Substance: IRON\MINERALS\POTASSIUM IOD\SODIUM FLUORIDE\SODIUM MOLYBDATE\SODIUM SELENITE\ZINC
     Dosage: LOWER VOLUME BAG FOR 1 DAY PER WEEK
     Route: 042
  36. SMOFLIPID [Suspect]
     Active Substance: FISH OIL\MEDIUM-CHAIN TRIGLYCERIDES\OLIVE OIL\SOYBEAN OIL
     Indication: Parenteral nutrition
     Dosage: DOSAGE TEXT :3000 MLS
     Route: 042
     Dates: start: 20240217, end: 20240218
  37. SMOFLIPID [Suspect]
     Active Substance: FISH OIL\MEDIUM-CHAIN TRIGLYCERIDES\OLIVE OIL\SOYBEAN OIL
     Indication: Short-bowel syndrome
     Dosage: DOSAGE TEXT :3000 MLS
     Route: 042
     Dates: start: 20240218, end: 20240219
  38. SMOFLIPID [Suspect]
     Active Substance: FISH OIL\MEDIUM-CHAIN TRIGLYCERIDES\OLIVE OIL\SOYBEAN OIL
     Indication: Palliative care
     Dosage: DOSAGE TEXT :3000 MLS
     Route: 042
     Dates: start: 20240112
  39. SMOFLIPID [Suspect]
     Active Substance: FISH OIL\MEDIUM-CHAIN TRIGLYCERIDES\OLIVE OIL\SOYBEAN OIL
     Indication: Gastrointestinal disorder
     Dosage: DOSAGE TEXT :3000 MLS
     Route: 042
     Dates: start: 20240409, end: 20240410
  40. SMOFLIPID [Suspect]
     Active Substance: FISH OIL\MEDIUM-CHAIN TRIGLYCERIDES\OLIVE OIL\SOYBEAN OIL
     Dosage: DOSAGE TEXT :3000 MLS
     Route: 042
     Dates: start: 20240411, end: 20240412
  41. SMOFLIPID [Suspect]
     Active Substance: FISH OIL\MEDIUM-CHAIN TRIGLYCERIDES\OLIVE OIL\SOYBEAN OIL
     Dosage: DOSAGE TEXT :3000 MLS
     Route: 042
     Dates: start: 20240417
  42. SMOFLIPID [Suspect]
     Active Substance: FISH OIL\MEDIUM-CHAIN TRIGLYCERIDES\OLIVE OIL\SOYBEAN OIL
     Dosage: LOWER VOLUME BAG FOR 1 DAY PER WEEK
     Route: 042
  43. ZINC SULFATE [Suspect]
     Active Substance: ZINC SULFATE
     Indication: Parenteral nutrition
     Dosage: DOSAGE TEXT:3000 MLS
     Route: 042
     Dates: start: 20240217, end: 20240218
  44. ZINC SULFATE [Suspect]
     Active Substance: ZINC SULFATE
     Indication: Short-bowel syndrome
     Dosage: DOSAGE TEXT:3000 MLS
     Route: 042
     Dates: start: 20240218, end: 20240219
  45. ZINC SULFATE [Suspect]
     Active Substance: ZINC SULFATE
     Indication: Palliative care
     Dosage: DOSAGE TEXT:3000 MLS
     Route: 042
     Dates: start: 20240112
  46. ZINC SULFATE [Suspect]
     Active Substance: ZINC SULFATE
     Indication: Gastrointestinal disorder
     Dosage: DOSAGE TEXT:3000 MLS
     Route: 042
     Dates: start: 20240409, end: 20240410
  47. ZINC SULFATE [Suspect]
     Active Substance: ZINC SULFATE
     Dosage: DOSAGE TEXT:3000 MLS
     Route: 042
     Dates: start: 20240411, end: 20240412
  48. ZINC SULFATE [Suspect]
     Active Substance: ZINC SULFATE
     Dosage: DOSAGE TEXT:3000 MLS
     Route: 042
     Dates: start: 20240417
  49. ZINC SULFATE [Suspect]
     Active Substance: ZINC SULFATE
     Dosage: LOWER VOLUME BAG FOR 1 DAY PER WEEK
     Route: 042
  50. CALCIUM CHLORIDE [Suspect]
     Active Substance: CALCIUM CHLORIDE
     Indication: Parenteral nutrition
     Dosage: DOSAGE TEXT:3000 MLS
     Route: 042
     Dates: start: 20240217, end: 20240218
  51. CALCIUM CHLORIDE [Suspect]
     Active Substance: CALCIUM CHLORIDE
     Indication: Short-bowel syndrome
     Dosage: DOSAGE TEXT:3000 MLS
     Route: 042
     Dates: start: 20240218, end: 20240219
  52. CALCIUM CHLORIDE [Suspect]
     Active Substance: CALCIUM CHLORIDE
     Indication: Palliative care
     Dosage: DOSAGE TEXT:3000 MLS
     Route: 042
     Dates: start: 20240112
  53. CALCIUM CHLORIDE [Suspect]
     Active Substance: CALCIUM CHLORIDE
     Indication: Gastrointestinal disorder
     Dosage: LOWER VOLUME BAG FOR 1 DAY PER WEEK
     Route: 042
  54. MAGNESIUM SULFATE [Suspect]
     Active Substance: MAGNESIUM SULFATE\MAGNESIUM SULFATE HEPTAHYDRATE
     Indication: Parenteral nutrition
     Dosage: DOSAGE TEXT :MAGNESIUM SULPHATE 49.3% BAG, 3000 MLS
     Route: 042
     Dates: start: 20240217, end: 20240218
  55. MAGNESIUM SULFATE [Suspect]
     Active Substance: MAGNESIUM SULFATE\MAGNESIUM SULFATE HEPTAHYDRATE
     Indication: Short-bowel syndrome
     Dosage: DOSAGE TEXT :MAGNESIUM SULPHATE 49.3% BAG, 3000 MLS
     Route: 042
     Dates: start: 20240218, end: 20240219
  56. MAGNESIUM SULFATE [Suspect]
     Active Substance: MAGNESIUM SULFATE\MAGNESIUM SULFATE HEPTAHYDRATE
     Indication: Palliative care
     Dosage: DOSAGE TEXT :MAGNESIUM SULPHATE 49.3% BAG, 3000 MLS
     Route: 042
     Dates: start: 20240112
  57. MAGNESIUM SULFATE [Suspect]
     Active Substance: MAGNESIUM SULFATE\MAGNESIUM SULFATE HEPTAHYDRATE
     Indication: Gastrointestinal disorder
     Dosage: DOSAGE TEXT :3000 MLS
     Route: 042
     Dates: start: 20240409, end: 20240410
  58. MAGNESIUM SULFATE [Suspect]
     Active Substance: MAGNESIUM SULFATE\MAGNESIUM SULFATE HEPTAHYDRATE
     Dosage: DOSAGE TEXT :3000 MLS
     Route: 042
     Dates: start: 20240411, end: 20240412
  59. MAGNESIUM SULFATE [Suspect]
     Active Substance: MAGNESIUM SULFATE\MAGNESIUM SULFATE HEPTAHYDRATE
     Dosage: DOSAGE TEXT :3000 MLS
     Route: 042
     Dates: start: 20240417
  60. MAGNESIUM SULFATE [Suspect]
     Active Substance: MAGNESIUM SULFATE\MAGNESIUM SULFATE HEPTAHYDRATE
     Dosage: LOWER VOLUME BAG FOR 1 DAY PER WEEK
     Route: 042
  61. POTASSIUM CHLORIDE [Suspect]
     Active Substance: POTASSIUM CHLORIDE
     Indication: Parenteral nutrition
     Dosage: DOSAGE TEXT :3000 MLS
     Route: 042
     Dates: start: 20240112
  62. POTASSIUM CHLORIDE [Suspect]
     Active Substance: POTASSIUM CHLORIDE
     Indication: Short-bowel syndrome
     Dosage: DOSAGE TEXT :3000 MLS
     Route: 042
     Dates: start: 20240217, end: 20240218
  63. POTASSIUM CHLORIDE [Suspect]
     Active Substance: POTASSIUM CHLORIDE
     Indication: Palliative care
     Dosage: DOSAGE TEXT :3000 MLS
     Route: 042
     Dates: start: 20240218, end: 20240219
  64. POTASSIUM CHLORIDE [Suspect]
     Active Substance: POTASSIUM CHLORIDE
     Indication: Gastrointestinal disorder
     Dosage: DOSAGE TEXT :3000 MLS
     Route: 042
     Dates: start: 20240409, end: 20240410
  65. POTASSIUM CHLORIDE [Suspect]
     Active Substance: POTASSIUM CHLORIDE
     Dosage: DOSAGE TEXT :3000 MLS
     Route: 042
     Dates: start: 20240411, end: 20240412
  66. POTASSIUM CHLORIDE [Suspect]
     Active Substance: POTASSIUM CHLORIDE
     Dosage: DOSAGE TEXT :3000 MLS
     Route: 042
     Dates: start: 20240417
  67. POTASSIUM CHLORIDE [Suspect]
     Active Substance: POTASSIUM CHLORIDE
     Dosage: LOWER VOLUME BAG FOR 1 DAY PER WEEK
     Route: 042
  68. SODIUM ACETATE [Suspect]
     Active Substance: SODIUM ACETATE
     Indication: Parenteral nutrition
     Dosage: DOSAGE TEXT:3000 MLS
     Route: 042
     Dates: start: 20240112
  69. SODIUM ACETATE [Suspect]
     Active Substance: SODIUM ACETATE
     Indication: Short-bowel syndrome
     Dosage: DOSAGE TEXT:3000 MLS
     Route: 042
     Dates: start: 20240218, end: 20240219
  70. SODIUM ACETATE [Suspect]
     Active Substance: SODIUM ACETATE
     Indication: Palliative care
     Dosage: DOSAGE TEXT:3000 MLS
     Route: 042
     Dates: start: 20240217, end: 20240218
  71. SODIUM ACETATE [Suspect]
     Active Substance: SODIUM ACETATE
     Indication: Gastrointestinal disorder
     Dosage: DOSAGE TEXT:3000 MLS
     Route: 042
     Dates: start: 20240409, end: 20240410
  72. SODIUM ACETATE [Suspect]
     Active Substance: SODIUM ACETATE
     Dosage: DOSAGE TEXT:3000 MLS
     Route: 042
     Dates: start: 20240411, end: 20240412
  73. SODIUM ACETATE [Suspect]
     Active Substance: SODIUM ACETATE
     Dosage: DOSAGE TEXT:3000 MLS
     Route: 042
     Dates: start: 20240417
  74. SODIUM ACETATE [Suspect]
     Active Substance: SODIUM ACETATE
     Dosage: LOWER VOLUME BAG FOR 1 DAY PER WEEK
     Route: 042
  75. SODIUM GLYCEROPHOSPHATE [Suspect]
     Active Substance: SODIUM GLYCEROPHOSPHATE
     Indication: Parenteral nutrition
     Dosage: DOSAGE TEXT:3000 MLS
     Route: 042
     Dates: start: 20240217, end: 20240218
  76. SODIUM GLYCEROPHOSPHATE [Suspect]
     Active Substance: SODIUM GLYCEROPHOSPHATE
     Indication: Short-bowel syndrome
     Dosage: DOSAGE TEXT:3000 MLS
     Route: 042
     Dates: start: 20240218, end: 20240219
  77. SODIUM GLYCEROPHOSPHATE [Suspect]
     Active Substance: SODIUM GLYCEROPHOSPHATE
     Indication: Palliative care
     Dosage: DOSAGE TEXT:3000 MLS
     Route: 042
     Dates: start: 20240112
  78. SODIUM GLYCEROPHOSPHATE [Suspect]
     Active Substance: SODIUM GLYCEROPHOSPHATE
     Indication: Gastrointestinal disorder
     Dosage: DOSAGE TEXT:3000 MLS
     Route: 042
     Dates: start: 20240409, end: 20240410
  79. SODIUM GLYCEROPHOSPHATE [Suspect]
     Active Substance: SODIUM GLYCEROPHOSPHATE
     Dosage: DOSAGE TEXT:3000 MLS
     Route: 042
     Dates: start: 20240411, end: 20240412
  80. SODIUM GLYCEROPHOSPHATE [Suspect]
     Active Substance: SODIUM GLYCEROPHOSPHATE
     Dosage: DOSAGE TEXT:3000 MLS
     Route: 042
     Dates: start: 20240417
  81. SODIUM GLYCEROPHOSPHATE [Suspect]
     Active Substance: SODIUM GLYCEROPHOSPHATE
     Dosage: LOWER VOLUME BAG FOR 1 DAY PER WEEK
     Route: 042
  82. WATER FOR INJECTION [Suspect]
     Active Substance: WATER
     Indication: Parenteral nutrition
     Dosage: DOSAGE TEXT:WATER FOR TPN FORMULATION, 3000 MLS
     Route: 042
     Dates: start: 20240217, end: 20240218
  83. WATER FOR INJECTION [Suspect]
     Active Substance: WATER
     Indication: Short-bowel syndrome
     Dosage: DOSAGE TEXT:WATER FOR TPN FORMULATION, 3000 MLS
     Route: 042
     Dates: start: 20240218, end: 20240219
  84. WATER FOR INJECTION [Suspect]
     Active Substance: WATER
     Indication: Palliative care
     Dosage: DOSAGE TEXT:WATER FOR TPN FORMULATION, 3000 MLS
     Route: 042
     Dates: start: 20240112
  85. WATER FOR INJECTION [Suspect]
     Active Substance: WATER
     Indication: Gastrointestinal disorder
     Dosage: DOSAGE TEXT:WATER FOR TPN FORMULATION, 3000 MLS
     Route: 042
     Dates: start: 20240409, end: 20240410
  86. WATER FOR INJECTION [Suspect]
     Active Substance: WATER
     Dosage: DOSAGE TEXT:WATER FOR TPN FORMULATION, 3000 MLS
     Route: 042
     Dates: start: 20240411, end: 20240412
  87. WATER FOR INJECTION [Suspect]
     Active Substance: WATER
     Dosage: DOSAGE TEXT:WATER FOR TPN FORMULATION, 3000 MLS
     Route: 042
     Dates: start: 20240417
  88. WATER FOR INJECTION [Suspect]
     Active Substance: WATER
     Dosage: LOWER VOLUME BAG FOR 1 DAY PER WEEK
     Route: 042
  89. CALCIUM CHLORIDE [Suspect]
     Active Substance: CALCIUM CHLORIDE
     Indication: Parenteral nutrition
     Dosage: DOSAGE TEXT:3000 MLS
     Route: 042
     Dates: start: 20240409, end: 20240410
  90. CALCIUM CHLORIDE [Suspect]
     Active Substance: CALCIUM CHLORIDE
     Indication: Short-bowel syndrome
     Dosage: DOSAGE TEXT:3000 MLS
     Route: 042
     Dates: start: 20240411, end: 20240412
  91. CALCIUM CHLORIDE [Suspect]
     Active Substance: CALCIUM CHLORIDE
     Indication: Palliative care
     Dosage: DOSAGE TEXT:3000 MLS
     Route: 042
     Dates: start: 20240417
  92. CALCIUM CHLORIDE [Suspect]
     Active Substance: CALCIUM CHLORIDE
     Dosage: LOWER VOLUME BAG FOR 1 DAY PER WEEK
     Route: 042
  93. SODIUM CHLORIDE [Suspect]
     Active Substance: SODIUM CHLORIDE
     Indication: Parenteral nutrition
     Dosage: DOSAGE TEXT:3000 MLS
     Route: 042
     Dates: start: 20240409, end: 20240410
  94. SODIUM CHLORIDE [Suspect]
     Active Substance: SODIUM CHLORIDE
     Indication: Short-bowel syndrome
     Dosage: DOSAGE TEXT:3000 MLS
     Route: 042
     Dates: start: 20240411, end: 20240412
  95. SODIUM CHLORIDE [Suspect]
     Active Substance: SODIUM CHLORIDE
     Indication: Palliative care
     Dosage: DOSAGE TEXT:3000 MLS
     Route: 042
     Dates: start: 20240417
  96. SODIUM CHLORIDE [Suspect]
     Active Substance: SODIUM CHLORIDE
     Dosage: LOWER VOLUME BAG FOR 1 DAY PER WEEK
     Route: 042
  97. UNSPECIFIED INGREDIENT [Suspect]
     Active Substance: UNSPECIFIED INGREDIENT
     Dosage: UNK
     Route: 065

REACTIONS (14)
  - Hallucination [Unknown]
  - Stoma site discharge [Recovering/Resolving]
  - Body temperature decreased [Recovering/Resolving]
  - Infection [Unknown]
  - Haemoglobin abnormal [Recovering/Resolving]
  - Malaise [Recovering/Resolving]
  - Feeling cold [Unknown]
  - Blood pressure abnormal [Unknown]
  - Body temperature abnormal [Unknown]
  - Tenderness [Unknown]
  - Erythema [Unknown]
  - Feeling hot [Unknown]
  - Pustule [Unknown]
  - Scar inflammation [Unknown]

NARRATIVE: CASE EVENT DATE: 20240218
